FAERS Safety Report 13102396 (Version 2)
Quarter: 2017Q1

REPORT INFORMATION
  Report Type: Spontaneous
  Country: US (occurrence: US)
  Receive Date: 20170110
  Receipt Date: 20170301
  Transmission Date: 20170428
  Serious: Yes (Other)
  Sender: FDA-Public Use
  Company Number: US-BAYER-2017-005299

PATIENT
  Age: 27 Year
  Sex: Female
  Weight: 98.87 kg

DRUGS (1)
  1. MIRENA [Suspect]
     Active Substance: LEVONORGESTREL
     Indication: CONTRACEPTION
     Dosage: 20 MCG/24HR, CONT
     Route: 015
     Dates: start: 20110908, end: 201211

REACTIONS (13)
  - Musculoskeletal pain [None]
  - Amnesia [None]
  - Paraesthesia [None]
  - Anxiety [None]
  - Tinnitus [None]
  - Nausea [None]
  - Vision blurred [None]
  - Benign intracranial hypertension [None]
  - Vitreous floaters [None]
  - Headache [None]
  - Dizziness [None]
  - Neck pain [None]
  - Depression [None]

NARRATIVE: CASE EVENT DATE: 2012
